FAERS Safety Report 7534722-0 (Version None)
Quarter: 2011Q2

REPORT INFORMATION
  Report Type: 
  Country: None (occurrence: None)
  Receive Date: 20110609
  Receipt Date: 20110419
  Transmission Date: 20111010
  Serious: Yes (Hospitalization)
  Sender: FDA-Public Use
  Company Number: PHHY2011US24158

PATIENT
  Sex: Male
  Weight: 68.04 kg

DRUGS (14)
  1. DAPSONE [Concomitant]
  2. LASIX [Concomitant]
  3. EXJADE [Suspect]
     Indication: IRON OVERLOAD
  4. ZOFRAN [Concomitant]
  5. TACROLIMUS [Concomitant]
  6. MAGNESIUM SULFATE [Concomitant]
  7. MUCINEX [Concomitant]
  8. EXJADE [Suspect]
     Indication: ACUTE MYELOID LEUKAEMIA
     Dosage: 2000 MG, QD
     Route: 048
     Dates: start: 20110107, end: 20110321
  9. VALTREX [Concomitant]
  10. OXYCODONE HCL [Concomitant]
  11. GUAIFENESIN [Concomitant]
  12. PENICILLIN [Concomitant]
  13. ZYRTEC-D 12 HOUR [Concomitant]
  14. BENADRYL [Concomitant]

REACTIONS (12)
  - ABDOMINAL PAIN [None]
  - HEPATIC ENZYME INCREASED [None]
  - RENAL FAILURE ACUTE [None]
  - LIVER DISORDER [None]
  - ALANINE AMINOTRANSFERASE INCREASED [None]
  - BLOOD BILIRUBIN INCREASED [None]
  - BLOOD UREA INCREASED [None]
  - ASPARTATE AMINOTRANSFERASE INCREASED [None]
  - BLOOD ALKALINE PHOSPHATASE INCREASED [None]
  - GRAFT VERSUS HOST DISEASE [None]
  - MALAISE [None]
  - BLOOD CREATININE INCREASED [None]
